FAERS Safety Report 4943670-1 (Version None)
Quarter: 2006Q1

REPORT INFORMATION
  Report Type: 
  Country: None (occurrence: None)
  Receive Date: 20060314
  Receipt Date: 20051019
  Transmission Date: 20060701
  Serious: Yes (Other)
  Sender: FDA-Public Use
  Company Number: US-MERCK-0510USA08311

PATIENT
  Age: 45 Year
  Sex: Female
  Weight: 109 kg

DRUGS (11)
  1. VIOXX [Suspect]
     Indication: EXOSTOSIS
     Route: 048
     Dates: start: 20000601, end: 20040903
  2. VIOXX [Suspect]
     Route: 048
     Dates: start: 20000601, end: 20040903
  3. ATENOLOL [Concomitant]
     Route: 065
  4. TORADOL [Concomitant]
     Route: 065
  5. AMBIEN [Concomitant]
     Route: 065
  6. PREMARIN [Concomitant]
     Route: 065
  7. DYAZIDE [Concomitant]
     Route: 065
  8. COUMADIN [Concomitant]
     Route: 065
  9. HYDRODIURIL [Concomitant]
     Route: 065
  10. VALTREX [Concomitant]
     Route: 065
  11. AGGRENOX [Concomitant]
     Route: 065

REACTIONS (3)
  - CEREBROVASCULAR ACCIDENT [None]
  - HAEMORRHAGE [None]
  - HYPERTENSION [None]
